FAERS Safety Report 11979767 (Version 1)
Quarter: 2016Q1

REPORT INFORMATION
  Report Type: Report from Study
  Country: US (occurrence: US)
  Receive Date: 20160129
  Receipt Date: 20160129
  Transmission Date: 20160526
  Serious: No
  Sender: FDA-Public Use
  Company Number: US-AMGEN-USASL2016006119

PATIENT
  Age: 50 Year
  Sex: Female

DRUGS (2)
  1. VICODIN [Concomitant]
     Active Substance: ACETAMINOPHEN\HYDROCODONE BITARTRATE
     Dosage: UNK
  2. ENBREL [Suspect]
     Active Substance: ETANERCEPT
     Indication: RHEUMATOID ARTHRITIS
     Dosage: UNK UNK, UNK
     Route: 065
     Dates: start: 20151204

REACTIONS (16)
  - Memory impairment [Unknown]
  - Inflammation [Unknown]
  - Gait disturbance [Unknown]
  - Anxiety [Unknown]
  - Urticaria [Unknown]
  - Injection site swelling [Unknown]
  - Inappropriate schedule of drug administration [Unknown]
  - Injection site pain [Unknown]
  - Injection site warmth [Unknown]
  - Injection site pruritus [Unknown]
  - Insomnia [Unknown]
  - Injection site erythema [Unknown]
  - Injection site urticaria [Unknown]
  - Pruritus [Unknown]
  - Arthritis [Unknown]
  - Joint swelling [Unknown]
